APPROVED DRUG PRODUCT: PROCAINAMIDE HYDROCHLORIDE
Active Ingredient: PROCAINAMIDE HYDROCHLORIDE
Strength: 100MG/ML
Dosage Form/Route: INJECTABLE;INJECTION
Application: A088636 | Product #001 | TE Code: AP
Applicant: INTERNATIONAL MEDICATION SYSTEM
Approved: Jul 31, 1984 | RLD: No | RS: No | Type: RX